FAERS Safety Report 7243962-X (Version None)
Quarter: 2011Q1

REPORT INFORMATION
  Report Type: 
  Country: None (occurrence: None)
  Receive Date: 20110125
  Receipt Date: 20110113
  Transmission Date: 20110831
  Serious: Yes (Life-Threatening)
  Sender: FDA-Public Use
  Company Number: PHHY2011US03324

PATIENT
  Sex: Male

DRUGS (1)
  1. RECLAST [Suspect]
     Dosage: 5 MG, UNK

REACTIONS (12)
  - SKIN DISCOLOURATION [None]
  - DYSSTASIA [None]
  - FEELING HOT [None]
  - APHAGIA [None]
  - PYREXIA [None]
  - OEDEMA PERIPHERAL [None]
  - PAIN [None]
  - ARTHRALGIA [None]
  - FEELING ABNORMAL [None]
  - WEIGHT DECREASED [None]
  - ACTIVITIES OF DAILY LIVING IMPAIRED [None]
  - GAIT DISTURBANCE [None]
